FAERS Safety Report 4499692-0 (Version None)
Quarter: 2004Q4

REPORT INFORMATION
  Report Type: 
  Country: None (occurrence: None)
  Receive Date: 20041112
  Receipt Date: 20041109
  Transmission Date: 20050328
  Serious: Yes (Life-Threatening, Hospitalization)
  Sender: FDA-Public Use
  Company Number: PHBS2004NL15029

PATIENT
  Age: 49 Year
  Sex: Male

DRUGS (7)
  1. LEPONEX [Suspect]
     Indication: SCHIZOPHRENIA
     Route: 048
  2. GLIMEPIRIDE [Concomitant]
  3. OXAZEPAM [Concomitant]
  4. ISOSORBIDE DINITRATE [Concomitant]
  5. FUROSEMIDE [Concomitant]
  6. METFORMIN [Concomitant]
  7. IPRATROPIUM BROMIDE W/SALBUTAMOL [Concomitant]

REACTIONS (1)
  - CARDIAC FAILURE [None]
